FAERS Safety Report 13058074 (Version 1)
Quarter: 2016Q4

REPORT INFORMATION
  Report Type: Spontaneous
  Country: US (occurrence: US)
  Receive Date: 20161222
  Receipt Date: 20161222
  Transmission Date: 20170207
  Serious: Yes (Other)
  Sender: FDA-Public Use
  Company Number: None

PATIENT
  Age: 60 Year
  Sex: Female

DRUGS (1)
  1. FORTEO [Suspect]
     Active Substance: TERIPARATIDE
     Indication: OSTEOPOROSIS
     Dosage: ?          OTHER FREQUENCY:1;?
     Dates: start: 20161219, end: 20161219

REACTIONS (2)
  - Arthralgia [None]
  - Headache [None]

NARRATIVE: CASE EVENT DATE: 20161219
